FAERS Safety Report 19394873 (Version 13)
Quarter: 2025Q3

REPORT INFORMATION
  Report Type: Report from Study
  Country: US (occurrence: US)
  Receive Date: 20210609
  Receipt Date: 20250724
  Transmission Date: 20251021
  Serious: Yes (Other)
  Sender: TAKEDA
  Company Number: US-TAKEDA-2021TUS028344

PATIENT
  Sex: Female
  Weight: 66 kg

DRUGS (11)
  1. HUMAN IMMUNOGLOBULIN G [Suspect]
     Active Substance: HUMAN IMMUNOGLOBULIN G
     Indication: Immunodeficiency common variable
     Dosage: 6 GRAM, 1/WEEK
  2. DIPHENHYDRAMINE [Concomitant]
     Active Substance: DIPHENHYDRAMINE
  3. HYOSCYAMINE SULFATE [Concomitant]
     Active Substance: HYOSCYAMINE SULFATE
  4. IBUPROFEN [Concomitant]
     Active Substance: IBUPROFEN
  5. EPINEPHRINE [Concomitant]
     Active Substance: EPINEPHRINE
  6. ACETAMINOPHEN [Concomitant]
     Active Substance: ACETAMINOPHEN
  7. CLINDAMYCIN HYDROCHLORIDE [Concomitant]
     Active Substance: CLINDAMYCIN HYDROCHLORIDE
  8. Lmx [Concomitant]
  9. HIZENTRA [Concomitant]
     Active Substance: HUMAN IMMUNOGLOBULIN G
  10. LIDOCAINE [Concomitant]
     Active Substance: LIDOCAINE
  11. DIPHENHYDRAMINE HYDROCHLORIDE [Concomitant]
     Active Substance: DIPHENHYDRAMINE HYDROCHLORIDE

REACTIONS (17)
  - Haemorrhage [Unknown]
  - Pneumonia [Unknown]
  - COVID-19 [Recovering/Resolving]
  - Illness [Unknown]
  - Nasopharyngitis [Unknown]
  - Multiple allergies [Unknown]
  - Seasonal allergy [Unknown]
  - Insurance issue [Unknown]
  - Herpes virus infection [Unknown]
  - Product dose omission issue [Unknown]
  - Product use issue [Unknown]
  - Viral infection [Unknown]
  - Sinusitis [Unknown]
  - Infusion site haemorrhage [Unknown]
  - Nasal congestion [Unknown]
  - Rash [Unknown]
  - Infusion site pain [Unknown]
